FAERS Safety Report 6282518-2 (Version None)
Quarter: 2009Q3

REPORT INFORMATION
  Report Type: 
  Country: None (occurrence: None)
  Receive Date: 20090722
  Receipt Date: 20090722
  Transmission Date: 20100115
  Serious: Yes (Hospitalization)
  Sender: FDA-Public Use
  Company Number: None

PATIENT
  Age: 40 Year
  Sex: Male
  Weight: 108.8633 kg

DRUGS (1)
  1. SOTRADECOL [Suspect]
     Indication: VARICOSE VEIN OPERATION

REACTIONS (11)
  - HYPERHIDROSIS [None]
  - HYPOTENSION [None]
  - INJECTION SITE IRRITATION [None]
  - INJECTION SITE PAIN [None]
  - LOSS OF CONSCIOUSNESS [None]
  - NAUSEA [None]
  - ROAD TRAFFIC ACCIDENT [None]
  - SKIN DISCOLOURATION [None]
  - TINNITUS [None]
  - VISUAL BRIGHTNESS [None]
  - VISUAL IMPAIRMENT [None]
